FAERS Safety Report 14610705 (Version 1)
Quarter: 2018Q1

REPORT INFORMATION
  Report Type: Spontaneous
  Country: US (occurrence: US)
  Receive Date: 20180307
  Receipt Date: 20180307
  Transmission Date: 20180509
  Serious: No
  Sender: FDA-Public Use
  Company Number: US-BAYER-2018-042684

PATIENT
  Sex: Female

DRUGS (1)
  1. BETASERON [Suspect]
     Active Substance: INTERFERON BETA-1B
     Dosage: UNK

REACTIONS (7)
  - Injection site pain [None]
  - Lack of injection site rotation [None]
  - Anxiety [None]
  - Injection site bruising [None]
  - Unevaluable event [None]
  - Weight decreased [None]
  - Needle fatigue [None]
